FAERS Safety Report 24178808 (Version 1)
Quarter: 2024Q3

REPORT INFORMATION
  Report Type: Spontaneous
  Country: CN (occurrence: CN)
  Receive Date: 20240806
  Receipt Date: 20240806
  Transmission Date: 20241017
  Serious: Yes (Disabling)
  Sender: PFIZER
  Company Number: CN-TAKEDA-2024TUS077269

PATIENT
  Age: 56 Year
  Sex: Male
  Weight: 58 kg

DRUGS (4)
  1. PANTOPRAZOLE [Suspect]
     Active Substance: PANTOPRAZOLE
     Indication: Pneumonia
     Dosage: 40 MG, 1X/DAY
     Route: 048
     Dates: start: 20200612, end: 20200624
  2. AMOXICILLIN\CLAVULANIC ACID [Suspect]
     Active Substance: AMOXICILLIN\CLAVULANIC ACID
     Indication: Pneumonia
     Dosage: 2.4 GRAM, TID
     Route: 041
     Dates: start: 20200611, end: 20200624
  3. MOXIFLOXACIN HYDROCHLORIDE [Suspect]
     Active Substance: MOXIFLOXACIN HYDROCHLORIDE\MOXIFLOXACIN HYDROCHLORIDE MONOHYDRATE
     Indication: Pneumonia
     Dosage: 0.4 GRAM, QD
     Route: 048
     Dates: start: 20200611, end: 20200624
  4. REDUCED GLUTATHIONE [Concomitant]
     Indication: Hepatic function abnormal
     Dosage: 1.8 GRAM, QD
     Route: 041
     Dates: start: 20200611, end: 20200624

REACTIONS (3)
  - Hepatic function abnormal [Recovering/Resolving]
  - Condition aggravated [Recovering/Resolving]
  - Off label use [Unknown]

NARRATIVE: CASE EVENT DATE: 20200615
